FAERS Safety Report 9767628 (Version 1)
Quarter: 2013Q4

REPORT INFORMATION
  Report Type: Spontaneous
  Country: FR (occurrence: FR)
  Receive Date: 20131217
  Receipt Date: 20131217
  Transmission Date: 20140711
  Serious: Yes (Hospitalization, Other)
  Sender: FDA-Public Use
  Company Number: FR-UCBSA-105669

PATIENT
  Age: 51 Year
  Sex: Male

DRUGS (10)
  1. KEPPRA [Suspect]
     Indication: EPILEPSY
     Dosage: UNKNOWN DOSE
     Route: 048
     Dates: start: 2012, end: 2012
  2. KEPPRA [Suspect]
     Indication: EPILEPSY
     Route: 048
     Dates: start: 2012, end: 2012
  3. KEPPRA [Suspect]
     Indication: EPILEPSY
     Route: 048
     Dates: start: 2012, end: 2012
  4. KEPPRA [Suspect]
     Indication: EPILEPSY
     Route: 048
     Dates: start: 20120723, end: 2012
  5. RIVOTRIL [Concomitant]
     Dosage: UNKNOWN DOSE
  6. URBANYL [Concomitant]
     Dosage: UNKNOWN DOSE
  7. URBANYL [Concomitant]
     Dates: start: 201207, end: 2012
  8. LOXAPAC [Concomitant]
     Dosage: 5 DROPS 3/DAY
     Dates: start: 201207, end: 2012
  9. COMBIVIR [Concomitant]
     Dosage: 1 IN THE MORNING AND IN THE EVENING
     Dates: start: 20120723
  10. KALETRA [Concomitant]
     Dosage: 2 IN THE MORNING AND IN THE EVENING
     Dates: start: 20120723

REACTIONS (7)
  - Hepatocellular injury [Recovered/Resolved]
  - Gamma-glutamyltransferase increased [Recovered/Resolved]
  - Convulsion [Unknown]
  - Grand mal convulsion [Unknown]
  - Renal atrophy [Unknown]
  - Fall [Unknown]
  - Confusional state [Unknown]
